FAERS Safety Report 4381187-6 (Version None)
Quarter: 2004Q2

REPORT INFORMATION
  Report Type: 
  Country: None (occurrence: None)
  Receive Date: 20040621
  Receipt Date: 20040614
  Transmission Date: 20050107
  Serious: Yes (Other)
  Sender: FDA-Public Use
  Company Number: 200416096GDDC

PATIENT
  Age: 34 Year
  Sex: Female

DRUGS (2)
  1. LEFLUNOMIDE [Suspect]
     Indication: RHEUMATOID ARTHRITIS
     Route: 048
     Dates: start: 20010501, end: 20031001
  2. PREDNISONE [Concomitant]
     Dosage: DOSE: UNK

REACTIONS (1)
  - RHEUMATOID NODULE [None]
